FAERS Safety Report 5217815-2 (Version None)
Quarter: 2007Q1

REPORT INFORMATION
  Report Type: 
  Country: None (occurrence: None)
  Receive Date: 20070124
  Receipt Date: 20061227
  Transmission Date: 20070707
  Serious: Yes (Other)
  Sender: FDA-Public Use
  Company Number: JP-BOEHRINGER INGELHEIM PHARMACEUTICALS, INC.-2007-BP-01064NB

PATIENT
  Age: 72 Year
  Sex: Male

DRUGS (2)
  1. MICARDIS [Suspect]
     Indication: HYPERTENSION
     Dates: start: 20040716, end: 20060922
  2. ADALAT [Concomitant]
     Indication: HYPERTENSION
     Route: 048
     Dates: start: 20040827

REACTIONS (2)
  - PYREXIA [None]
  - TOXIC SKIN ERUPTION [None]
